FAERS Safety Report 17994890 (Version 1)
Quarter: 2020Q3

REPORT INFORMATION
  Report Type: Report from Study
  Country: US (occurrence: US)
  Receive Date: 20200708
  Receipt Date: 20200708
  Transmission Date: 20201103
  Serious: Yes (Other)
  Sender: FDA-Public Use
  Company Number: US-BAYER-2020-132413

PATIENT
  Age: 53 Year
  Sex: Female
  Weight: 97.78 kg

DRUGS (4)
  1. ADEMPAS [Suspect]
     Active Substance: RIOCIGUAT
     Indication: PULMONARY ARTERIAL HYPERTENSION
     Dosage: 2.5 MG, TID
     Route: 048
  2. UPTRAVI [Concomitant]
     Active Substance: SELEXIPAG
     Dosage: UNK
  3. OPSUMIT [Concomitant]
     Active Substance: MACITENTAN
     Dosage: UNK
  4. ADEMPAS [Suspect]
     Active Substance: RIOCIGUAT
     Indication: PULMONARY ARTERIAL HYPERTENSION
     Dosage: UNK
     Dates: start: 20190715

REACTIONS (14)
  - Asthenia [Not Recovered/Not Resolved]
  - Epistaxis [None]
  - Nausea [Not Recovered/Not Resolved]
  - Hypotension [Unknown]
  - Muscle spasms [Not Recovered/Not Resolved]
  - Pain in extremity [Not Recovered/Not Resolved]
  - Loss of consciousness [Unknown]
  - Haemoptysis [None]
  - Loss of consciousness [Unknown]
  - Vomiting [Unknown]
  - Decreased appetite [Not Recovered/Not Resolved]
  - Arthralgia [Not Recovered/Not Resolved]
  - Headache [Unknown]
  - Product dose omission issue [Unknown]

NARRATIVE: CASE EVENT DATE: 202006
